FAERS Safety Report 9612199 (Version 2)
Quarter: 2013Q4

REPORT INFORMATION
  Report Type: Spontaneous
  Country: US (occurrence: US)
  Receive Date: 20131010
  Receipt Date: 20131219
  Transmission Date: 20140711
  Serious: Yes (Other)
  Sender: FDA-Public Use
  Company Number: US-ASTELLAS-2013US010316

PATIENT
  Age: 57 Year
  Sex: Female

DRUGS (1)
  1. MYRBETRIQ [Suspect]
     Indication: HYPERTONIC BLADDER
     Dosage: 50 MG, UID/QD
     Route: 048
     Dates: start: 20130911, end: 20130922

REACTIONS (5)
  - Intentional drug misuse [Unknown]
  - Surgery [Unknown]
  - Blood urine present [Recovered/Resolved]
  - Chromaturia [Recovered/Resolved]
  - Abdominal pain [Recovered/Resolved]
